FAERS Safety Report 7964523-0 (Version None)
Quarter: 2011Q4

REPORT INFORMATION
  Report Type: 
  Country: None (occurrence: None)
  Receive Date: 20111208
  Receipt Date: 20111206
  Transmission Date: 20120403
  Serious: Yes (Life-Threatening)
  Sender: FDA-Public Use
  Company Number: PHHY2011IT102892

PATIENT
  Sex: Female

DRUGS (1)
  1. AFINITOR [Suspect]
     Indication: RENAL CELL CARCINOMA
     Dosage: 10 MG, DAILY
     Route: 048
     Dates: start: 20110301, end: 20110312

REACTIONS (4)
  - LARYNGEAL OEDEMA [None]
  - DYSPNOEA [None]
  - RESPIRATORY FAILURE [None]
  - TONGUE OEDEMA [None]
